FAERS Safety Report 8058119-2 (Version None)
Quarter: 2012Q1

REPORT INFORMATION
  Report Type: 
  Country: None (occurrence: None)
  Receive Date: 20120113
  Receipt Date: 20120104
  Transmission Date: 20120608
  Serious: Yes (Hospitalization)
  Sender: FDA-Public Use
  Company Number: 2011SP055708

PATIENT
  Age: 71 Year
  Sex: Female

DRUGS (5)
  1. PEG-INTRON [Suspect]
     Indication: CHRONIC HEPATITIS
     Dosage: 100 MCG; QD;PO
     Route: 048
     Dates: start: 20111003, end: 20111123
  2. ROCEPREVIR (SCH-503034) [Suspect]
     Indication: CHRONIC HEPATITIS
     Dosage: 2400 MG;QD;PO
     Route: 048
     Dates: start: 20111031, end: 20111123
  3. PARACETAMOL+CODEIN [Concomitant]
  4. NEORECORMON [Concomitant]
  5. RIBAVIRIN [Suspect]
     Indication: CHRONIC HEPATITIS
     Dosage: 800 MG;QD;PO
     Route: 048
     Dates: start: 20111031, end: 20111123

REACTIONS (1)
  - SYNCOPE [None]
